FAERS Safety Report 21060541 (Version 2)
Quarter: 2022Q3

REPORT INFORMATION
  Report Type: Spontaneous
  Country: ES (occurrence: ES)
  Receive Date: 20220708
  Receipt Date: 20220715
  Transmission Date: 20221027
  Serious: Yes (Other)
  Sender: FDA-Public Use
  Company Number: None

PATIENT
  Age: 76 Year
  Sex: Male

DRUGS (8)
  1. METRONIDAZOLE [Suspect]
     Active Substance: METRONIDAZOLE
     Indication: Product used for unknown indication
     Route: 065
     Dates: start: 20210414, end: 20210423
  2. FLUCONAZOLE [Suspect]
     Active Substance: FLUCONAZOLE
     Indication: Product used for unknown indication
     Route: 065
     Dates: start: 20210414, end: 20210503
  3. CEFEPIME HYDROCHLORIDE [Suspect]
     Active Substance: CEFEPIME HYDROCHLORIDE
     Indication: Product used for unknown indication
     Route: 065
     Dates: start: 20210423, end: 20210426
  4. DAPTOMYCIN [Suspect]
     Active Substance: DAPTOMYCIN
     Indication: Product used for unknown indication
     Route: 065
     Dates: start: 20210414, end: 20210424
  5. ALCLOXA [Suspect]
     Active Substance: ALCLOXA
     Indication: Product used for unknown indication
     Route: 065
     Dates: start: 20210407, end: 20210425
  6. CLOXACILLIN [Suspect]
     Active Substance: CLOXACILLIN
     Indication: Product used for unknown indication
     Route: 065
     Dates: start: 20210407, end: 20220425
  7. LEVOFLOXACIN [Concomitant]
     Active Substance: LEVOFLOXACIN
     Indication: Product used for unknown indication
     Dates: start: 20210426, end: 20210503
  8. CEFAZOLIN SODIUM [Concomitant]
     Active Substance: CEFAZOLIN SODIUM
     Indication: Product used for unknown indication
     Dates: start: 20210426, end: 20210503

REACTIONS (2)
  - Adverse reaction [Not Recovered/Not Resolved]
  - Thrombocytopenia [Not Recovered/Not Resolved]

NARRATIVE: CASE EVENT DATE: 20210419
